FAERS Safety Report 4289763-6 (Version None)
Quarter: 2004Q1

REPORT INFORMATION
  Report Type: 
  Country: None (occurrence: None)
  Receive Date: 20040206
  Receipt Date: 20030904
  Transmission Date: 20041129
  Serious: Yes (Other)
  Sender: FDA-Public Use
  Company Number: HQWYE68008SEP03

PATIENT
  Age: 21 Year
  Sex: Female
  Weight: 82.17 kg

DRUGS (1)
  1. NORPLANT SYSTEM [Suspect]
     Indication: CONTRACEPTION
     Dosage: 6 CAPSULES, SUBCUTANEOUS
     Route: 058
     Dates: start: 20000522

REACTIONS (6)
  - GALLBLADDER DISORDER [None]
  - HELICOBACTER INFECTION [None]
  - HEPATIC STEATOSIS [None]
  - HIATUS HERNIA [None]
  - INSOMNIA [None]
  - WEIGHT INCREASED [None]
